FAERS Safety Report 6235799-5 (Version None)
Quarter: 2009Q2

REPORT INFORMATION
  Report Type: 
  Country: None (occurrence: None)
  Receive Date: 20090619
  Receipt Date: 20090608
  Transmission Date: 20091009
  Serious: Yes (Other)
  Sender: FDA-Public Use
  Company Number: US-PFIZER INC-2008155187

PATIENT
  Sex: Female

DRUGS (16)
  1. PROVERA [Suspect]
     Indication: HORMONE REPLACEMENT THERAPY
     Dosage: 2.5 MG, UNK
     Dates: start: 19960201, end: 19970101
  2. OGEN [Suspect]
     Indication: HORMONE REPLACEMENT THERAPY
     Dosage: 0.625 MG, UNK
     Dates: start: 19900201, end: 19960601
  3. CLIMARA [Suspect]
     Indication: MENOPAUSAL SYMPTOMS
     Dosage: UNK
     Route: 062
     Dates: start: 19960601, end: 19961201
  4. PREMARIN [Suspect]
     Indication: HORMONE REPLACEMENT THERAPY
     Dosage: 0.625 MG, UNK
     Dates: start: 19960901, end: 19961201
  5. PREMARIN [Suspect]
     Dosage: UNK
     Dates: start: 19981201, end: 19990201
  6. PREMARIN [Suspect]
     Dosage: UNK
     Dates: start: 19960901, end: 20000101
  7. CYCRIN [Suspect]
     Indication: HORMONE REPLACEMENT THERAPY
     Dosage: 2.5 MG, UNK
     Dates: start: 19900201, end: 19960201
  8. PREMPRO [Suspect]
     Indication: HORMONE REPLACEMENT THERAPY
     Dosage: 0.625/2.5
     Route: 048
     Dates: start: 19890101, end: 20000701
  9. FLUOXETINE [Concomitant]
     Indication: ANXIETY
     Dosage: 20 MG, UNK
     Route: 048
     Dates: start: 20080401
  10. EFFEXOR [Concomitant]
     Indication: ANXIETY
     Dosage: UNK
     Dates: start: 20060101, end: 20080401
  11. EFFEXOR [Concomitant]
     Indication: HOT FLUSH
  12. ZOLOFT [Concomitant]
     Indication: ANXIETY
     Dosage: 100 MG, UNK
     Route: 048
     Dates: start: 19940101, end: 20050101
  13. ZOLOFT [Concomitant]
     Indication: DEPRESSION
  14. AMITRIPTYLINE [Concomitant]
     Indication: INSOMNIA
     Dosage: 50 MG, UNK
     Route: 048
     Dates: start: 19800101
  15. LORAZEPAM [Concomitant]
     Dosage: 0.5 MG, UNK
     Route: 048
  16. CITALOPRAM [Concomitant]
     Dosage: 20 MG, UNK
     Route: 048

REACTIONS (3)
  - ANXIETY [None]
  - BREAST CANCER FEMALE [None]
  - SQUAMOUS CELL CARCINOMA [None]
